FAERS Safety Report 13954223 (Version 4)
Quarter: 2017Q4

REPORT INFORMATION
  Report Type: Report from Study
  Country: JP (occurrence: JP)
  Receive Date: 20170911
  Receipt Date: 20171031
  Transmission Date: 20180320
  Serious: Yes (Other)
  Sender: FDA-Public Use
  Company Number: JP-ROCHE-1988064

PATIENT
  Age: 69 Year
  Sex: Male
  Weight: 83.8 kg

DRUGS (11)
  1. KETOPROFEN. [Concomitant]
     Active Substance: KETOPROFEN
     Indication: BACK PAIN
     Route: 065
     Dates: start: 20121211
  2. FEBUXOSTAT. [Concomitant]
     Active Substance: FEBUXOSTAT
     Route: 065
     Dates: start: 20131112
  3. CYCLOPHOSPHAMIDE. [Suspect]
     Active Substance: CYCLOPHOSPHAMIDE
     Indication: NON-HODGKIN^S LYMPHOMA UNSPECIFIED HISTOLOGY INDOLENT
     Dosage: DOSE OF LAST CYCLOPHOSPHAMIDE TAKEN 1365.0 MG?DATE OF MOST RECENT DOSE OF CYCLOPHOSPHAMIDE PRIOR TO
     Route: 042
     Dates: start: 20121026
  4. POVIDONE-IODINE. [Concomitant]
     Active Substance: POVIDONE-IODINE
     Indication: INFECTION PROPHYLAXIS
     Route: 065
     Dates: start: 20141205
  5. OBINUTUZUMAB. [Suspect]
     Active Substance: OBINUTUZUMAB
     Indication: NON-HODGKIN^S LYMPHOMA UNSPECIFIED HISTOLOGY INDOLENT
     Dosage: VOLUME OF LAST GA101 TAKEN 250 ML?DOSE CONCENTRATION OF LAST GA101 TAKEN 4 MG/ML?DATE OF MOST RECENT
     Route: 042
     Dates: start: 20121023
  6. DOXORUBICIN [Suspect]
     Active Substance: DOXORUBICIN
     Indication: NON-HODGKIN^S LYMPHOMA UNSPECIFIED HISTOLOGY INDOLENT
     Dosage: DOSE OF LAST DOXORUBICIN TAKEN 91.0 MG?DATE OF MOST RECENT DOSE OF DOXORUBICIN PRIOR TO AE ONSET 20
     Route: 042
     Dates: start: 20121026
  7. ZOLPIDEM TARTRATE. [Concomitant]
     Active Substance: ZOLPIDEM TARTRATE
     Indication: INSOMNIA
     Route: 065
     Dates: start: 20121023
  8. EBIOS [Concomitant]
     Indication: NUTRITIONAL SUPPLEMENTATION
  9. VINCRISTINE [Suspect]
     Active Substance: VINCRISTINE
     Indication: NON-HODGKIN^S LYMPHOMA UNSPECIFIED HISTOLOGY INDOLENT
     Dosage: DOSE OF LAST VINCRISTINE TAKEN 2 MG?DATE OF MOST RECENT DOSE OF VINCRISTINE PRIOR TO AE ONSET 20 FEB
     Route: 042
     Dates: start: 20121026
  10. PREDNISONE. [Suspect]
     Active Substance: PREDNISONE
     Indication: NON-HODGKIN^S LYMPHOMA UNSPECIFIED HISTOLOGY INDOLENT
     Dosage: DOSE OF LAST PREDNISONE TAKEN: 100 MG ?DATE OF MOST RECENT DOSE OF PREDNISONE 23 FEB 2013?DOSE AS PE
     Route: 048
     Dates: start: 20121023
  11. KAKKONTO [Concomitant]
     Active Substance: HERBALS
     Route: 065
     Dates: start: 20140107

REACTIONS (1)
  - Prostate cancer [Not Recovered/Not Resolved]

NARRATIVE: CASE EVENT DATE: 20170830
